FAERS Safety Report 4825337-3 (Version None)
Quarter: 2005Q4

REPORT INFORMATION
  Report Type: 
  Country: None (occurrence: None)
  Receive Date: 20051111
  Receipt Date: 20051102
  Transmission Date: 20060501
  Serious: Yes (Life-Threatening, Other)
  Sender: FDA-Public Use
  Company Number: NL-JNJFOC-20040501544

PATIENT
  Sex: Female

DRUGS (1)
  1. DAKTARIN [Suspect]
     Dosage: 0.5 MEASURING SPOON QDS
     Route: 048

REACTIONS (6)
  - CHOKING [None]
  - CYANOSIS [None]
  - DRUG ADMINISTRATION ERROR [None]
  - HYPOTONIA [None]
  - MEDICATION ERROR [None]
  - RESPIRATORY ARREST [None]
